FAERS Safety Report 9348478 (Version 1)
Quarter: 2013Q2

REPORT INFORMATION
  Report Type: Spontaneous
  Country: DE (occurrence: DE)
  Receive Date: 20130614
  Receipt Date: 20130614
  Transmission Date: 20140414
  Serious: Yes (Other)
  Sender: FDA-Public Use
  Company Number: DE-ABBOTT-13X-062-1103720-00

PATIENT
  Age: 34 Year
  Sex: Female

DRUGS (20)
  1. CLARITHROMYCIN [Suspect]
     Indication: BRONCHOPNEUMONIA
     Route: 048
     Dates: start: 200707
  2. CLARITHROMYCIN [Suspect]
     Indication: BACTERIAL INFECTION
     Route: 048
  3. MOXIFLOXACIN [Suspect]
     Indication: BRONCHOPNEUMONIA
     Route: 048
     Dates: start: 200806
  4. MOXIFLOXACIN [Suspect]
     Indication: BACTERIAL INFECTION
  5. GENTAMICIN [Suspect]
     Indication: BRONCHOPNEUMONIA
     Route: 042
     Dates: start: 201102
  6. GENTAMICIN [Suspect]
     Indication: BACTERIAL INFECTION
     Route: 042
  7. MEROPENEM [Suspect]
     Indication: BRONCHOPNEUMONIA
     Route: 042
     Dates: start: 201105
  8. MEROPENEM [Suspect]
     Indication: BACTERIAL INFECTION
  9. PIPERACILLIN/TAZOBACTAM [Suspect]
     Indication: BRONCHOPNEUMONIA
     Route: 042
  10. PIPERACILLIN/TAZOBACTAM [Suspect]
     Indication: BACTERIAL INFECTION
     Route: 042
     Dates: start: 201102
  11. AMPICILLIN AND SULBACTAM [Suspect]
     Indication: BRONCHOPNEUMONIA
  12. AMPICILLIN AND SULBACTAM [Suspect]
     Indication: BACTERIAL INFECTION
  13. CEFAZOLIN [Suspect]
     Indication: BRONCHOPNEUMONIA
  14. CEFAZOLIN [Suspect]
     Indication: BACTERIAL INFECTION
  15. CEFUROXIME [Suspect]
     Indication: BRONCHOPNEUMONIA
  16. CEFUROXIME [Suspect]
     Indication: BACTERIAL INFECTION
  17. CIPROFLOXACIN [Suspect]
     Indication: BRONCHOPNEUMONIA
     Route: 048
  18. CIPROFLOXACIN [Suspect]
     Indication: BACTERIAL INFECTION
     Route: 048
     Dates: start: 201105
  19. AMPICILLIN [Suspect]
     Indication: BRONCHOPNEUMONIA
  20. AMPICILLIN [Suspect]
     Indication: BACTERIAL INFECTION

REACTIONS (2)
  - Pneumonia haemophilus [Unknown]
  - Pathogen resistance [Unknown]
